FAERS Safety Report 12489987 (Version 1)
Quarter: 2016Q2

REPORT INFORMATION
  Report Type: Spontaneous
  Country: TW (occurrence: TW)
  Receive Date: 20160622
  Receipt Date: 20160622
  Transmission Date: 20160815
  Serious: Yes (Other)
  Sender: FDA-Public Use
  Company Number: TW-CORDEN PHARMA LATINA S.P.A.-TW-2016COR000178

PATIENT
  Age: 16 Year
  Sex: Male

DRUGS (8)
  1. IFOSFAMIDE. [Suspect]
     Active Substance: IFOSFAMIDE
     Indication: HODGKIN^S DISEASE
     Dosage: UNK
  2. GEMCITABINE [Suspect]
     Active Substance: GEMCITABINE\GEMCITABINE HYDROCHLORIDE
     Indication: HODGKIN^S DISEASE
     Dosage: UNK
     Route: 065
  3. MELPHALAN [Suspect]
     Active Substance: MELPHALAN
     Indication: HODGKIN^S DISEASE
     Dosage: UNK
  4. CARBOPLATIN. [Suspect]
     Active Substance: CARBOPLATIN
     Indication: HODGKIN^S DISEASE
     Dosage: UNK
  5. CYTARABINE. [Suspect]
     Active Substance: CYTARABINE
     Indication: HODGKIN^S DISEASE
     Dosage: UNK
  6. ETOPOSIDE. [Suspect]
     Active Substance: ETOPOSIDE
     Indication: HODGKIN^S DISEASE
     Dosage: UNK
  7. VINORELBINE [Suspect]
     Active Substance: VINORELBINE\VINORELBINE TARTRATE
     Indication: HODGKIN^S DISEASE
     Dosage: UNK
     Route: 065
  8. BICNU [Suspect]
     Active Substance: CARMUSTINE
     Indication: HODGKIN^S DISEASE
     Dosage: UNK

REACTIONS (15)
  - Cardiomegaly [Unknown]
  - Deep vein thrombosis [Recovered/Resolved]
  - Mouth haemorrhage [Unknown]
  - Oedema peripheral [Unknown]
  - Petechiae [Unknown]
  - Chromaturia [Unknown]
  - Autoimmune haemolytic anaemia [Recovering/Resolving]
  - Hyperbilirubinaemia [Unknown]
  - Dyspnoea exertional [Unknown]
  - Local swelling [Unknown]
  - Autoimmune pancytopenia [Recovering/Resolving]
  - Immune thrombocytopenic purpura [Recovering/Resolving]
  - Autoimmune neutropenia [Recovering/Resolving]
  - Bacterial infection [Unknown]
  - Systemic candida [Unknown]
